FAERS Safety Report 7279173-1 (Version None)
Quarter: 2011Q1

REPORT INFORMATION
  Report Type: 
  Country: None (occurrence: None)
  Receive Date: 20110207
  Receipt Date: 20110201
  Transmission Date: 20110831
  Serious: Yes (Hospitalization, Other)
  Sender: FDA-Public Use
  Company Number: US-ABBOTT-11P-163-0700031-00

PATIENT
  Sex: Female
  Weight: 95.34 kg

DRUGS (14)
  1. HUMIRA [Suspect]
     Indication: RHEUMATOID ARTHRITIS
     Dates: start: 20050101
  2. DIOVAN [Concomitant]
     Indication: CORONARY ARTERY DISEASE
  3. PREMARIN [Concomitant]
     Indication: HOT FLUSH
  4. PREMARIN [Concomitant]
     Indication: MOOD SWINGS
  5. ESTRING [Concomitant]
     Indication: INCONTINENCE
  6. PREVACID [Concomitant]
     Indication: GASTROOESOPHAGEAL REFLUX DISEASE
  7. LYRICA [Concomitant]
     Indication: FIBROMYALGIA
  8. FOLIC ACID [Concomitant]
     Indication: PROPHYLAXIS
  9. METHOTREXATE [Concomitant]
     Indication: RHEUMATOID ARTHRITIS
  10. FOLIC ACID [Concomitant]
     Indication: RENAL DISORDER
  11. CLONAZEPAM [Concomitant]
     Indication: PRODUCT USED FOR UNKNOWN INDICATION
     Dosage: EVERY 8 HOURS AS REQUIRED
  12. VITAMIN D [Concomitant]
     Indication: PRODUCT USED FOR UNKNOWN INDICATION
  13. CYMBALTA [Concomitant]
     Indication: ANTIDEPRESSANT THERAPY
  14. FOLIC ACID [Concomitant]
     Indication: LIVER DISORDER

REACTIONS (6)
  - GALLBLADDER DISORDER [None]
  - INJECTION SITE PAIN [None]
  - DEHYDRATION [None]
  - RHEUMATOID ARTHRITIS [None]
  - WRONG TECHNIQUE IN DRUG USAGE PROCESS [None]
  - INCORRECT DOSE ADMINISTERED [None]
